FAERS Safety Report 5118864-5 (Version None)
Quarter: 2006Q3

REPORT INFORMATION
  Report Type: 
  Country: None (occurrence: None)
  Receive Date: 20060927
  Receipt Date: 20060911
  Transmission Date: 20061208
  Serious: Yes (Hospitalization)
  Sender: FDA-Public Use
  Company Number: 2006-08-1002

PATIENT
  Age: 52 Year
  Sex: Female
  Weight: 68.0396 kg

DRUGS (6)
  1. PEG-INTRON [Suspect]
     Indication: HEPATITIS C
     Dosage: 150 MCG;/WK; SC
     Route: 058
     Dates: start: 20050304, end: 20050608
  2. REBETOL [Suspect]
     Indication: HEPATITIS C
     Dosage: 1000 MG; QD; PO
     Route: 048
     Dates: start: 20050304, end: 20050608
  3. LITHIUM CARBONATE [Concomitant]
  4. WELLBUTRIN [Concomitant]
  5. PREVACID [Concomitant]
  6. PERCOCET [Concomitant]

REACTIONS (9)
  - ASCITES [None]
  - CARDIAC FAILURE CONGESTIVE [None]
  - NAUSEA [None]
  - ORAL INTAKE REDUCED [None]
  - PERICARDIAL EFFUSION [None]
  - PERICARDIAL EFFUSION MALIGNANT [None]
  - PERITONITIS BACTERIAL [None]
  - PLEURAL EFFUSION [None]
  - WEIGHT DECREASED [None]
